FAERS Safety Report 7216511-X (Version None)
Quarter: 2011Q1

REPORT INFORMATION
  Report Type: 
  Country: None (occurrence: None)
  Receive Date: 20110107
  Receipt Date: 20101230
  Transmission Date: 20110831
  Serious: Yes (Hospitalization, Disabling, Other)
  Sender: FDA-Public Use
  Company Number: US-MERCK-0811USA01204

PATIENT
  Age: 78 Year
  Sex: Female

DRUGS (2)
  1. FOSAMAX [Suspect]
     Indication: OSTEOPOROSIS
     Route: 048
     Dates: start: 20010702, end: 20060720
  2. LEVOTHYROXINE SODIUM [Concomitant]
     Indication: THYROID DISORDER
     Route: 065
     Dates: start: 19860101

REACTIONS (25)
  - OSTEONECROSIS OF JAW [None]
  - DRUG INTOLERANCE [None]
  - EXOSTOSIS [None]
  - CARDIOGENIC SHOCK [None]
  - SINUS TACHYCARDIA [None]
  - CARDIAC DISORDER [None]
  - PULMONARY HYPERTENSION [None]
  - SUPRAVENTRICULAR TACHYCARDIA [None]
  - VISUAL FIELD DEFECT [None]
  - TOOTH DISORDER [None]
  - RESPIRATORY FAILURE [None]
  - RIGHT ATRIAL DILATATION [None]
  - URINARY TRACT INFECTION [None]
  - PYREXIA [None]
  - CARDIAC INDEX DECREASED [None]
  - DRUG HYPERSENSITIVITY [None]
  - IMPAIRED HEALING [None]
  - JAW DISORDER [None]
  - ENDOCARDITIS [None]
  - SEPTIC SHOCK [None]
  - MITRAL VALVE INCOMPETENCE [None]
  - LACTIC ACIDOSIS [None]
  - HERPES ZOSTER [None]
  - ASTHMA [None]
  - CONSTIPATION [None]
